FAERS Safety Report 8520958-9 (Version None)
Quarter: 2012Q3

REPORT INFORMATION
  Report Type: 
  Country: None (occurrence: None)
  Receive Date: 20120719
  Receipt Date: 20120711
  Transmission Date: 20120928
  Serious: Yes (Hospitalization, Other)
  Sender: FDA-Public Use
  Company Number: US-BAYER-2012-004591

PATIENT
  Age: 43 Year
  Sex: Female
  Weight: 73 kg

DRUGS (7)
  1. ADVIL [Concomitant]
  2. PERCOCET [Concomitant]
  3. EFFEXOR [Concomitant]
  4. YASMIN [Suspect]
     Indication: CONTRACEPTION
     Dosage: UNK
     Route: 048
     Dates: start: 20010101, end: 20061003
  5. YASMIN [Suspect]
     Dosage: UNK
     Dates: start: 20060913, end: 20061003
  6. ATIVAN [Concomitant]
  7. VALTREX [Concomitant]
     Dosage: 500 MG, UNK

REACTIONS (12)
  - PAIN IN EXTREMITY [None]
  - EMOTIONAL DISTRESS [None]
  - OEDEMA PERIPHERAL [None]
  - FEAR [None]
  - ARTHRALGIA [None]
  - INJURY [None]
  - GENERAL PHYSICAL HEALTH DETERIORATION [None]
  - DEEP VEIN THROMBOSIS [None]
  - JOINT SWELLING [None]
  - ANXIETY [None]
  - ANHEDONIA [None]
  - DYSPNOEA [None]
